FAERS Safety Report 9945461 (Version 1)
Quarter: 2014Q1

REPORT INFORMATION
  Report Type: Report from Study
  Country: US (occurrence: US)
  Receive Date: 20140303
  Receipt Date: 20140303
  Transmission Date: 20141002
  Serious: No
  Sender: FDA-Public Use
  Company Number: US-ABBVIE-13P-163-1051737-00

PATIENT
  Age: 53 Year
  Sex: Male

DRUGS (4)
  1. HUMIRA [Suspect]
     Indication: PSORIATIC ARTHROPATHY
  2. HUMIRA [Suspect]
  3. HUMIRA [Suspect]
  4. DELVENEX [Concomitant]
     Indication: PSORIASIS
     Route: 061

REACTIONS (3)
  - Device malfunction [Unknown]
  - Device malfunction [Unknown]
  - Drug ineffective [Unknown]
